FAERS Safety Report 9507659 (Version 1)
Quarter: 2013Q3

REPORT INFORMATION
  Report Type: Spontaneous
  Country: AT (occurrence: None)
  Receive Date: 20130905
  Receipt Date: 20130905
  Transmission Date: 20140515
  Serious: Yes (Other)
  Sender: FDA-Public Use
  Company Number: KAD201308-001112

PATIENT
  Age: 30 Year
  Sex: Male

DRUGS (7)
  1. RIBAVIRIN [Suspect]
     Indication: ACUTE HEPATITIS C
     Dosage: 72 W
  2. PEGYLATED INTERFERON ALFA-2A [Suspect]
     Indication: ACUTE HEPATITIS C
     Dosage: 72 W
  3. DARUNAVIR [Suspect]
     Indication: HIV INFECTION
     Dates: end: 201201
  4. RITONAVIR [Suspect]
     Indication: HIV INFECTION
     Dates: end: 201201
  5. RALTEGRAVIR [Suspect]
     Indication: HIV INFECTION
  6. TENOFOVIR [Suspect]
     Indication: HIV INFECTION
  7. EMTRICITABINE [Suspect]
     Indication: HIV INFECTION

REACTIONS (6)
  - Neutropenia [None]
  - Lymphogranuloma venereum [None]
  - Proctitis [None]
  - Rectal haemorrhage [None]
  - CD4 lymphocytes decreased [None]
  - Chlamydia test positive [None]
